FAERS Safety Report 14339310 (Version 1)
Quarter: 2017Q4

REPORT INFORMATION
  Report Type: Spontaneous
  Country: CA (occurrence: CA)
  Receive Date: 20171230
  Receipt Date: 20171230
  Transmission Date: 20180321
  Serious: Yes (Other)
  Sender: FDA-Public Use
  Company Number: CA-CIPLA LTD.-2017CA30375

PATIENT

DRUGS (1)
  1. LEVOFLOXACIN. [Suspect]
     Active Substance: LEVOFLOXACIN
     Indication: URINARY TRACT INFECTION
     Dosage: 500 MG, UNK (SINGLE DOSE ; IN TOTAL)
     Route: 048

REACTIONS (2)
  - Neurotoxicity [Recovered/Resolved]
  - Acute psychosis [Recovered/Resolved]
